FAERS Safety Report 8135983-X (Version None)
Quarter: 2012Q1

REPORT INFORMATION
  Report Type: 
  Country: None (occurrence: None)
  Receive Date: 20120209
  Receipt Date: 20120201
  Transmission Date: 20120608
  Serious: Yes (Hospitalization, Other)
  Sender: FDA-Public Use
  Company Number: 2011SP058244

PATIENT
  Sex: Male

DRUGS (16)
  1. ESSENTIALE FORTE [Concomitant]
  2. HERPESIN [Concomitant]
  3. TEMODAL [Suspect]
     Indication: GLIOBLASTOMA MULTIFORME
     Dosage: 140;250;20 MG, QD
     Dates: start: 20110210, end: 20110326
  4. TEMODAL [Suspect]
     Indication: GLIOBLASTOMA MULTIFORME
     Dosage: 140;250;20 MG, QD
     Dates: start: 20110506, end: 20110510
  5. TEMODAL [Suspect]
     Indication: GLIOBLASTOMA MULTIFORME
     Dosage: 140;250;20 MG, QD
     Dates: start: 20110126
  6. TEMODAL [Suspect]
     Indication: GLIOBLASTOMA MULTIFORME
     Dosage: 140;250;20 MG, QD
     Dates: start: 20110406, end: 20110410
  7. FLAVOBION [Concomitant]
  8. XYZAL [Concomitant]
  9. OMEPRAZOLE [Concomitant]
  10. FUROSEMIDE [Concomitant]
  11. PREDNISONE [Concomitant]
  12. KYTRIL [Concomitant]
  13. CLARITHROMYCIN [Concomitant]
  14. NEURONTIN [Concomitant]
  15. URSOSAN [Concomitant]
  16. FORTECORTIN [Concomitant]

REACTIONS (7)
  - THROMBOCYTOPENIA [None]
  - LIVER FUNCTION TEST ABNORMAL [None]
  - HERPES ZOSTER [None]
  - HAEMATOTOXICITY [None]
  - DISEASE PROGRESSION [None]
  - HEPATOMEGALY [None]
  - LIVER DISORDER [None]
